FAERS Safety Report 23904551 (Version 1)
Quarter: 2024Q2

REPORT INFORMATION
  Report Type: Report from Study
  Country: BR (occurrence: BR)
  Receive Date: 20240527
  Receipt Date: 20240527
  Transmission Date: 20240716
  Serious: Yes (Life-Threatening, Other)
  Sender: FDA-Public Use
  Company Number: BR-002147023-PHHY2019BR097820

PATIENT
  Sex: Female

DRUGS (3)
  1. BUDESONIDE\FORMOTEROL FUMARATE [Suspect]
     Active Substance: BUDESONIDE\FORMOTEROL FUMARATE
     Indication: Product used for unknown indication
     Dosage: UNK (FORMOTEROL FUMARATE 12UG, BUDESONIDE 400UG)
     Route: 065
  2. GLYCOPYRROLATE [Suspect]
     Active Substance: GLYCOPYRROLATE
     Indication: Product used for unknown indication
     Dosage: UNK
     Route: 065
  3. ACTONEL [Concomitant]
     Active Substance: RISEDRONATE SODIUM
     Indication: Product used for unknown indication
     Dosage: 1 DF, QW
     Route: 065

REACTIONS (8)
  - Pain [Unknown]
  - Drug dependence [Unknown]
  - Dyspnoea [Unknown]
  - Osteoarthritis [Unknown]
  - Illness [Unknown]
  - Fall [Recovered/Resolved]
  - Joint injury [Recovered/Resolved]
  - Osteoporosis [Not Recovered/Not Resolved]
